FAERS Safety Report 17244427 (Version 6)
Quarter: 2021Q3

REPORT INFORMATION
  Report Type: Spontaneous
  Country: US (occurrence: US)
  Receive Date: 20200107
  Receipt Date: 20210712
  Transmission Date: 20211014
  Serious: Yes (Other)
  Sender: FDA-Public Use
  Company Number: US-GILEAD-2020-0445035

PATIENT
  Age: 52 Year
  Sex: Female
  Weight: 77.1 kg

DRUGS (81)
  1. PANTOPRAZOLE [Concomitant]
     Active Substance: PANTOPRAZOLE
  2. EPZICOM [Concomitant]
     Active Substance: ABACAVIR SULFATE\LAMIVUDINE
  3. ISENTRESS [Concomitant]
     Active Substance: RALTEGRAVIR POTASSIUM
  4. ZOLOFT [Concomitant]
     Active Substance: SERTRALINE HYDROCHLORIDE
  5. METOPROLOL. [Concomitant]
     Active Substance: METOPROLOL
  6. PROPOXYPHENE AND ACETAMINOPHEN [Concomitant]
     Active Substance: ACETAMINOPHEN\PROPOXYPHENE NAPSYLATE
  7. HYDROCODONE/ACETAMINOPHEN [Concomitant]
     Active Substance: ACETAMINOPHEN\HYDROCODONE
  8. SULFAMETHOXAZOLE AND TRIMETHOPRIM [Concomitant]
     Active Substance: SULFAMETHOXAZOLE\TRIMETHOPRIM
  9. TRAMADOL. [Concomitant]
     Active Substance: TRAMADOL
  10. ONDANSETRON [Concomitant]
     Active Substance: ONDANSETRON
  11. ALBUTEROL [SALBUTAMOL] [Concomitant]
     Active Substance: ALBUTEROL
  12. PRENAPLUS [Concomitant]
  13. CEPHALEXIN [CEFALEXIN] [Concomitant]
     Active Substance: CEPHALEXIN
  14. DIPHENHYDRAMINE. [Concomitant]
     Active Substance: DIPHENHYDRAMINE
  15. B?PLEX [VITAMIN B COMPLEX] [Concomitant]
  16. ASPIRIN [ACETYLSALICYLIC ACID] [Concomitant]
     Active Substance: ASPIRIN
  17. LASIX [Concomitant]
     Active Substance: FUROSEMIDE
  18. LEVOXYL [Concomitant]
     Active Substance: LEVOTHYROXINE SODIUM
  19. AMLODIPINE BESYLATE. [Concomitant]
     Active Substance: AMLODIPINE BESYLATE
  20. CLONIDINE. [Concomitant]
     Active Substance: CLONIDINE
  21. ASCORBIC ACID. [Concomitant]
     Active Substance: ASCORBIC ACID
  22. BANOPHEN [Concomitant]
     Active Substance: DIPHENHYDRAMINE HYDROCHLORIDE
  23. DOK [Concomitant]
     Active Substance: DOCUSATE SODIUM
  24. SENNA PLUS [SENNA ALEXANDRINA] [Concomitant]
  25. CORTISONE [Concomitant]
     Active Substance: CORTISONE
  26. LOVENOX [LEVOFLOXACIN] [Concomitant]
     Active Substance: LEVOFLOXACIN
  27. OMEPRAZOLE. [Concomitant]
     Active Substance: OMEPRAZOLE
  28. EDURANT [Concomitant]
     Active Substance: RILPIVIRINE HYDROCHLORIDE
  29. GENTAMICIN. [Concomitant]
     Active Substance: GENTAMICIN
  30. MAGNESIUM OXIDE. [Concomitant]
     Active Substance: MAGNESIUM OXIDE
  31. AMLODIPINE [Concomitant]
     Active Substance: AMLODIPINE BESYLATE
  32. CLINDAMYCIN HCL [Concomitant]
     Active Substance: CLINDAMYCIN HYDROCHLORIDE
  33. BENZONATATE. [Concomitant]
     Active Substance: BENZONATATE
  34. PHENAZOPYRIDINE. [Concomitant]
     Active Substance: PHENAZOPYRIDINE
  35. CETIRIZINE [Concomitant]
     Active Substance: CETIRIZINE HYDROCHLORIDE
  36. SODIUM POLYSTYRENE SULFONATE. [Concomitant]
     Active Substance: SODIUM POLYSTYRENE SULFONATE
  37. ACETAMINOPHEN. [Concomitant]
     Active Substance: ACETAMINOPHEN
  38. BACTRIM [Concomitant]
     Active Substance: SULFAMETHOXAZOLE\TRIMETHOPRIM
  39. FAMOTIDINE. [Concomitant]
     Active Substance: FAMOTIDINE
  40. HEPARIN [Concomitant]
     Active Substance: HEPARIN SODIUM
  41. TIVICAY [Concomitant]
     Active Substance: DOLUTEGRAVIR SODIUM
  42. PROTONIX [OMEPRAZOLE] [Concomitant]
     Active Substance: OMEPRAZOLE
  43. AVELOX [Concomitant]
     Active Substance: MOXIFLOXACIN HYDROCHLORIDE
  44. METRONIDAZOLE. [Concomitant]
     Active Substance: METRONIDAZOLE
  45. VITAMIN D3 [Concomitant]
     Active Substance: CHOLECALCIFEROL
  46. OXYCODONE [Concomitant]
     Active Substance: OXYCODONE
  47. NITROFURANTOIN. [Concomitant]
     Active Substance: NITROFURANTOIN
  48. BUPROPION. [Concomitant]
     Active Substance: BUPROPION
  49. ATRIPLA [Suspect]
     Active Substance: EFAVIRENZ\EMTRICITABINE\TENOFOVIR DISOPROXIL FUMARATE
     Dosage: UNK
     Route: 048
     Dates: start: 2008, end: 201006
  50. ACYCLOVIR [ACICLOVIR] [Concomitant]
     Active Substance: ACYCLOVIR
  51. ATORVASTATIN [Concomitant]
     Active Substance: ATORVASTATIN
  52. VANCOMYCIN [Concomitant]
     Active Substance: VANCOMYCIN
  53. INTELENCE [Concomitant]
     Active Substance: ETRAVIRINE
  54. CARVEDILOL. [Concomitant]
     Active Substance: CARVEDILOL
  55. CLAVULANATE POTASSIUM [Concomitant]
     Active Substance: CLAVULANATE POTASSIUM
  56. ALLOPURINOL. [Concomitant]
     Active Substance: ALLOPURINOL
  57. GERI LANTA [Concomitant]
  58. MEPRON [Concomitant]
     Active Substance: ATOVAQUONE
  59. ATRIPLA [Suspect]
     Active Substance: EFAVIRENZ\EMTRICITABINE\TENOFOVIR DISOPROXIL FUMARATE
     Dosage: UNK
     Route: 048
     Dates: start: 201104, end: 2016
  60. AMOXICILLIN. [Concomitant]
     Active Substance: AMOXICILLIN
  61. CRESTOR [Concomitant]
     Active Substance: ROSUVASTATIN CALCIUM
  62. HYDRALAZINE [Concomitant]
     Active Substance: HYDRALAZINE HYDROCHLORIDE
  63. CALCITRIOL. [Concomitant]
     Active Substance: CALCITRIOL
  64. FOLIC ACID. [Concomitant]
     Active Substance: FOLIC ACID
  65. DARAPRIM [Concomitant]
     Active Substance: PYRIMETHAMINE
  66. ATRIPLA [Suspect]
     Active Substance: EFAVIRENZ\EMTRICITABINE\TENOFOVIR DISOPROXIL FUMARATE
     Dosage: UNK
     Route: 048
     Dates: start: 20100923, end: 20110314
  67. MAALOX ANTACID [Concomitant]
     Active Substance: ALUMINUM HYDROXIDE\DIMETHICONE\MAGNESIUM HYDROXIDE
  68. ATIVAN [Concomitant]
     Active Substance: LORAZEPAM
  69. LISINOPRIL. [Concomitant]
     Active Substance: LISINOPRIL
  70. NIFEDIPINE. [Concomitant]
     Active Substance: NIFEDIPINE
  71. CIPROFLOXACIN. [Concomitant]
     Active Substance: CIPROFLOXACIN
  72. FERROUS SULFATE. [Concomitant]
     Active Substance: FERROUS SULFATE
  73. FLUCONAZOLE. [Concomitant]
     Active Substance: FLUCONAZOLE
  74. CYCLOBENZAPRINE. [Concomitant]
     Active Substance: CYCLOBENZAPRINE
  75. OSELTAMIVIR [Concomitant]
     Active Substance: OSELTAMIVIR
  76. ATRIPLA [Suspect]
     Active Substance: EFAVIRENZ\EMTRICITABINE\TENOFOVIR DISOPROXIL FUMARATE
     Indication: HIV INFECTION
     Dosage: UNK
     Route: 048
     Dates: start: 2008, end: 201206
  77. ATRIPLA [Suspect]
     Active Substance: EFAVIRENZ\EMTRICITABINE\TENOFOVIR DISOPROXIL FUMARATE
     Dosage: UNK
     Route: 065
     Dates: start: 20100801, end: 20140410
  78. PREDNISOLONE. [Concomitant]
     Active Substance: PREDNISOLONE
  79. TRIAMCINOLONE [Concomitant]
     Active Substance: TRIAMCINOLONE
  80. IBUPROFEN. [Concomitant]
     Active Substance: IBUPROFEN
  81. VITAMIN D2 [Concomitant]
     Active Substance: ERGOCALCIFEROL

REACTIONS (14)
  - Anxiety [Unknown]
  - Anhedonia [Unknown]
  - Emotional distress [Unknown]
  - Tooth extraction [Unknown]
  - Asthenia [Not Recovered/Not Resolved]
  - End stage renal disease [Unknown]
  - Tooth loss [Unknown]
  - Bone density decreased [Unknown]
  - Pain [Unknown]
  - Chronic kidney disease [Not Recovered/Not Resolved]
  - Acute kidney injury [Unknown]
  - Mobility decreased [Not Recovered/Not Resolved]
  - Economic problem [Unknown]
  - Depression [Not Recovered/Not Resolved]

NARRATIVE: CASE EVENT DATE: 2017
